FAERS Safety Report 20053105 (Version 2)
Quarter: 2022Q1

REPORT INFORMATION
  Report Type: Spontaneous
  Country: JP (occurrence: JP)
  Receive Date: 20211110
  Receipt Date: 20220201
  Transmission Date: 20220423
  Serious: Yes (Hospitalization)
  Sender: FDA-Public Use
  Company Number: JP-ACTELION-A-CH2017-159209

PATIENT
  Age: 61 Year
  Sex: Female
  Weight: 74.9 kg

DRUGS (28)
  1. UPTRAVI [Suspect]
     Active Substance: SELEXIPAG
     Indication: Pulmonary arterial hypertension
     Dosage: 0.6 MG, BID
     Route: 048
     Dates: start: 20170628, end: 20170629
  2. UPTRAVI [Suspect]
     Active Substance: SELEXIPAG
     Indication: Pulmonary hypertension
     Dosage: 0.2 MG, BID
     Route: 048
     Dates: start: 20170626, end: 20170626
  3. UPTRAVI [Suspect]
     Active Substance: SELEXIPAG
     Dosage: 0.4 MG, BID
     Route: 048
     Dates: start: 20170627, end: 20170627
  4. UPTRAVI [Suspect]
     Active Substance: SELEXIPAG
     Dosage: 0.2 MG, BID
     Route: 048
     Dates: start: 20170630, end: 20171113
  5. UPTRAVI [Suspect]
     Active Substance: SELEXIPAG
     Dosage: 0.4 MG, BID
     Route: 048
     Dates: start: 20171114, end: 20180326
  6. ADCIRCA [Suspect]
     Active Substance: TADALAFIL
     Indication: Pulmonary arterial hypertension
     Dosage: 40 MG, QD
     Route: 048
     Dates: end: 20170721
  7. ADCIRCA [Suspect]
     Active Substance: TADALAFIL
     Indication: Pulmonary hypertension
  8. OPSUMIT [Concomitant]
     Active Substance: MACITENTAN
     Indication: Pulmonary arterial hypertension
     Dosage: 10 MG, QD
     Route: 048
  9. OPSUMIT [Concomitant]
     Active Substance: MACITENTAN
     Indication: Pulmonary hypertension
  10. WARFARIN POTASSIUM [Concomitant]
     Active Substance: WARFARIN POTASSIUM
     Dosage: 1.5 MG, QD
  11. METOCLOPRAMIDE [Concomitant]
     Active Substance: METOCLOPRAMIDE
     Indication: Nausea
     Dosage: 15 MG, QD
     Dates: start: 20170630, end: 20180404
  12. AZOSEMIDE [Concomitant]
     Active Substance: AZOSEMIDE
     Indication: Cardiac failure
     Dosage: 60 MG, QD
  13. TRICHLORMETHIAZIDE [Concomitant]
     Active Substance: TRICHLORMETHIAZIDE
     Indication: Cardiac failure
     Dosage: 2 MG, QD
  14. SLOW K [Concomitant]
     Active Substance: POTASSIUM CHLORIDE
     Dosage: 3600 MG, QD
     Dates: end: 20180228
  15. SPIRONOLACTONE [Concomitant]
     Active Substance: SPIRONOLACTONE
     Indication: Cardiac failure
     Dosage: 50 MG, QD
  16. BUCOLOME [Concomitant]
     Active Substance: BUCOLOME
     Dosage: 300 MG, QD
  17. ADEMPAS [Concomitant]
     Active Substance: RIOCIGUAT
     Indication: Pulmonary arterial hypertension
     Dosage: 1.5 MG, QD
     Dates: start: 20170722
  18. ADEMPAS [Concomitant]
     Active Substance: RIOCIGUAT
     Indication: Pulmonary hypertension
  19. DOCARPAMINE [Concomitant]
     Active Substance: DOCARPAMINE
     Indication: Cardiac failure
     Dosage: 3 G, QD
     Dates: start: 20170807
  20. SENNOSIDES [Concomitant]
     Active Substance: SENNOSIDES
     Indication: Constipation
     Dosage: 24 MG, QD
  21. HERBALS [Concomitant]
     Active Substance: HERBALS
     Dosage: 7.5 G, QD
  22. AMITIZA [Concomitant]
     Active Substance: LUBIPROSTONE
     Indication: Constipation
     Dosage: 48 MCG, QD
  23. SAMSCA [Concomitant]
     Active Substance: TOLVAPTAN
     Indication: Cardiac failure
     Dosage: 7.5 MG, QD
  24. SODIUM FERROUS CITRATE [Concomitant]
     Active Substance: SODIUM FERROUS CITRATE
     Indication: Anaemia
     Dosage: 100 MG, QD
  25. RABEPRAZOLE SODIUM [Concomitant]
     Active Substance: RABEPRAZOLE SODIUM
     Indication: Gastrooesophageal reflux disease
     Dosage: 10 MG, QD
  26. CARBOCYSTEINE [Concomitant]
     Active Substance: CARBOCYSTEINE
     Dosage: 750 MG, QD
  27. REPAGLINIDE [Concomitant]
     Active Substance: REPAGLINIDE
     Indication: Type 2 diabetes mellitus
     Dosage: 10 MG, QD
  28. REPAGLINIDE [Concomitant]
     Active Substance: REPAGLINIDE

REACTIONS (5)
  - Cardiac failure [Recovered/Resolved]
  - Headache [Recovered/Resolved]
  - Nausea [Recovering/Resolving]
  - Arthralgia [Recovering/Resolving]
  - Diarrhoea [Recovered/Resolved]

NARRATIVE: CASE EVENT DATE: 20170629
